FAERS Safety Report 9041238 (Version 1)
Quarter: 2013Q1

REPORT INFORMATION
  Report Type: Spontaneous
  Country: US (occurrence: None)
  Receive Date: 20130123
  Receipt Date: 20130123
  Transmission Date: 20140127
  Serious: No
  Sender: FDA-Public Use
  Company Number: None

PATIENT
  Sex: 0

DRUGS (1)
  1. LARIAM [Suspect]

REACTIONS (24)
  - Dizziness [None]
  - Dysstasia [None]
  - Fall [None]
  - Insomnia [None]
  - Panic attack [None]
  - Anxiety [None]
  - Palpitations [None]
  - Paraesthesia [None]
  - Burning sensation [None]
  - Chills [None]
  - Piloerection [None]
  - Feeling abnormal [None]
  - Hyperacusis [None]
  - Tinnitus [None]
  - Visual impairment [None]
  - Influenza like illness [None]
  - Pain [None]
  - Myalgia [None]
  - Dyspnoea [None]
  - Amnesia [None]
  - Feeling abnormal [None]
  - Toxicity to various agents [None]
  - Nervous system disorder [None]
  - Injury [None]
